FAERS Safety Report 10983533 (Version 1)
Quarter: 2015Q1

REPORT INFORMATION
  Report Type: Spontaneous
  Country: US (occurrence: None)
  Receive Date: 20150227
  Receipt Date: 20150227
  Transmission Date: 20150721
  Serious: Yes (Life-Threatening)
  Sender: FDA-Public Use
  Company Number: LMI-2014-00141

PATIENT
  Age: 56 Year
  Sex: Female
  Weight: 98 kg

DRUGS (3)
  1. ALPRAZOLAM. [Concomitant]
     Active Substance: ALPRAZOLAM
  2. IBUPROFEN. [Concomitant]
     Active Substance: IBUPROFEN
  3. DEFINITY [Suspect]
     Active Substance: PERFLUTREN
     Indication: STRESS ECHOCARDIOGRAM
     Dosage: 1.3 ML OF DEFINITY DILUTED IN 8.7 ML NORMAL SALINE (1 ML,1 IN 1 D),INTRAVENOUS BOLUS
     Route: 040
     Dates: start: 20140318, end: 20140318

REACTIONS (12)
  - Hypersensitivity [None]
  - Pharyngeal oedema [None]
  - Hyperhidrosis [None]
  - Tachycardia [None]
  - Dizziness [None]
  - Urticaria [None]
  - Hypotension [None]
  - Rash [None]
  - Nausea [None]
  - Anxiety [None]
  - Respiratory distress [None]
  - Dyspnoea [None]

NARRATIVE: CASE EVENT DATE: 20140318
